FAERS Safety Report 20962719 (Version 1)
Quarter: 2022Q2

REPORT INFORMATION
  Report Type: Spontaneous
  Country: US (occurrence: US)
  Receive Date: 20220615
  Receipt Date: 20220615
  Transmission Date: 20220720
  Serious: No
  Sender: FDA-Public Use
  Company Number: US-PFIZER INC-202200835645

PATIENT
  Age: 75 Year
  Sex: Female

DRUGS (1)
  1. PAXLOVID [Suspect]
     Active Substance: NIRMATRELVIR\RITONAVIR
     Indication: COVID-19 treatment
     Dosage: UNK
     Dates: start: 202206

REACTIONS (6)
  - Fatigue [Not Recovered/Not Resolved]
  - Ageusia [Unknown]
  - Dysgeusia [Unknown]
  - Asthenia [Unknown]
  - Pyrexia [Unknown]
  - Anosmia [Unknown]

NARRATIVE: CASE EVENT DATE: 20220601
